FAERS Safety Report 18744969 (Version 1)
Quarter: 2021Q1

REPORT INFORMATION
  Report Type: Spontaneous
  Country: US (occurrence: US)
  Receive Date: 20210114
  Receipt Date: 20210114
  Transmission Date: 20210419
  Serious: Yes (Death, Other)
  Sender: FDA-Public Use
  Company Number: None

PATIENT
  Age: 28 Year
  Sex: Male
  Weight: 317.6 kg

DRUGS (1)
  1. CHIORHEXIDINE QLUCONATE ORAL RINSE 0.12% [Suspect]
     Active Substance: CHLORHEXIDINE GLUCONATE
     Indication: ANTIBIOTIC PROPHYLAXIS
     Route: 002
     Dates: start: 20201019, end: 20201029

REACTIONS (10)
  - Bacteraemia [None]
  - COVID-19 [None]
  - COVID-19 pneumonia [None]
  - Pulmonary congestion [None]
  - Pyrexia [None]
  - Lung opacity [None]
  - Burkholderia test positive [None]
  - Leukocytosis [None]
  - Recalled product administered [None]
  - Septic shock [None]

NARRATIVE: CASE EVENT DATE: 20201024
